FAERS Safety Report 9981465 (Version 1)
Quarter: 2014Q1

REPORT INFORMATION
  Report Type: Spontaneous
  Country: US (occurrence: US)
  Receive Date: 20140307
  Receipt Date: 20140307
  Transmission Date: 20141002
  Serious: Yes (Other)
  Sender: FDA-Public Use
  Company Number: US-JNJFOC-20140302966

PATIENT
  Sex: 0

DRUGS (2)
  1. OLYSIO [Suspect]
     Indication: HEPATITIS C
     Route: 048
  2. SOFOSBUVIR [Suspect]
     Indication: HEPATITIS C
     Route: 048

REACTIONS (2)
  - Neutropenia [Unknown]
  - Off label use [Unknown]
